FAERS Safety Report 12281453 (Version 1)
Quarter: 2016Q2

REPORT INFORMATION
  Report Type: Spontaneous
  Country: US (occurrence: None)
  Receive Date: 20160418
  Receipt Date: 20160418
  Transmission Date: 20160815
  Serious: Yes (Life-Threatening, Disabling, Other)
  Sender: FDA-Public Use
  Company Number: None

PATIENT
  Age: 44 Year
  Sex: Female
  Weight: 65.77 kg

DRUGS (45)
  1. FOLIC ACID. [Concomitant]
     Active Substance: FOLIC ACID
  2. RISPERDONE [Concomitant]
     Active Substance: RISPERIDONE
  3. DIPHENHYDRAMINE (BENOCTEN, SWITZERLAND) [Concomitant]
  4. LAMOTRIGINE. [Concomitant]
     Active Substance: LAMOTRIGINE
  5. ONDANSETRON [Concomitant]
     Active Substance: ONDANSETRON
  6. PIMOZIDE. [Concomitant]
     Active Substance: PIMOZIDE
  7. MAGNESIUM CITRATE. [Concomitant]
     Active Substance: MAGNESIUM CITRATE
  8. ARTANE [Concomitant]
     Active Substance: TRIHEXYPHENIDYL HYDROCHLORIDE
  9. CITRUCEL [Concomitant]
     Active Substance: METHYLCELLULOSE (4000 MPA.S)
  10. MULTIVITAMIN (KIRKLAND SIGNATURE PERFORMANCE MULTI ENERGY FORMULA [Concomitant]
  11. SPIRONOLACTONE. [Concomitant]
     Active Substance: SPIRONOLACTONE
  12. DHEA (DEXTROAMPHETAMINE SULPHATE) [Concomitant]
  13. PALIPERIDONE. [Concomitant]
     Active Substance: PALIPERIDONE
  14. PROPRANOLOL [Concomitant]
     Active Substance: PROPRANOLOL\PROPRANOLOL HYDROCHLORIDE
  15. PROCHLORPERAZINE. [Concomitant]
     Active Substance: PROCHLORPERAZINE
  16. FENERGAN (NON-CYP2D6) [Concomitant]
  17. VENLAFAXINE [Concomitant]
     Active Substance: VENLAFAXINE HYDROCHLORIDE
  18. METHYLPHENIDATE HYDROCHLORIDE. [Concomitant]
     Active Substance: METHYLPHENIDATE HYDROCHLORIDE
  19. OLANZAPINE. [Concomitant]
     Active Substance: OLANZAPINE
  20. OXCARBAZEPINE XR [Concomitant]
  21. COGENTIN [Concomitant]
     Active Substance: BENZTROPINE MESYLATE
  22. DIVALPROEX SODIUM ER [Suspect]
     Active Substance: DIVALPROEX SODIUM
     Indication: AFFECTIVE DISORDER
     Route: 048
  23. VITAMIN D3 [Concomitant]
     Active Substance: CHOLECALCIFEROL
  24. MIRALAX [Concomitant]
     Active Substance: POLYETHYLENE GLYCOL 3350
  25. QUETIAPINE. [Concomitant]
     Active Substance: QUETIAPINE
  26. NEURONTIN [Concomitant]
     Active Substance: GABAPENTIN
  27. SPIRIVA/ADVAIR 250/50/DIPHENYDRAMINE COMBINATION [Concomitant]
  28. TRETINOIN. [Concomitant]
     Active Substance: TRETINOIN
  29. ARIPIPRAZOLE. [Concomitant]
     Active Substance: ARIPIPRAZOLE
  30. MAGNESIUM CITRATE. [Concomitant]
     Active Substance: MAGNESIUM CITRATE
  31. C-TESTOSTERONE [Concomitant]
  32. FINACEA 15% GEL INTOLERANCES:LAMOTRIGINE/ARMODAFINIL COMBINATION) [Concomitant]
  33. LITHIUM CARBONATE. [Concomitant]
     Active Substance: LITHIUM CARBONATE
  34. MODAFINIL. [Concomitant]
     Active Substance: MODAFINIL
  35. ALGAL DHA [Concomitant]
  36. VISTARIL (HYDROXYZINE) [Concomitant]
  37. SERTRALINE [Concomitant]
     Active Substance: SERTRALINE HYDROCHLORIDE
  38. PERPHAZINE [Concomitant]
  39. L-CARNITINE [Concomitant]
     Active Substance: LEVOCARNITINE
  40. AMITIZA [Concomitant]
     Active Substance: LUBIPROSTONE
  41. NUVIGIL [Concomitant]
     Active Substance: ARMODAFINIL
  42. MIRALAX [Concomitant]
     Active Substance: POLYETHYLENE GLYCOL 3350
  43. GLYCERINE SUPPOSITORIES [Concomitant]
  44. BALZIVA [Concomitant]
     Active Substance: ETHINYL ESTRADIOL\NORETHINDRONE
  45. MINOCYCLINE [Concomitant]
     Active Substance: MINOCYCLINE\MINOCYCLINE HYDROCHLORIDE

REACTIONS (45)
  - Gingival bleeding [None]
  - Dry mouth [None]
  - Ear discomfort [None]
  - Trimethylaminuria [None]
  - Headache [None]
  - Glossodynia [None]
  - Rubber sensitivity [None]
  - Suicidal ideation [None]
  - Skin odour abnormal [None]
  - Blood glucose increased [None]
  - Hyperaesthesia [None]
  - Tongue ulceration [None]
  - Abdominal pain [None]
  - Hyperhidrosis [None]
  - Ear pruritus [None]
  - Rash pustular [None]
  - Swollen tongue [None]
  - Dyskinesia [None]
  - Myalgia [None]
  - Very low density lipoprotein increased [None]
  - Hepatotoxicity [None]
  - Uterine spasm [None]
  - Abdominal distension [None]
  - Ear pain [None]
  - Metabolic acidosis [None]
  - Carnitine deficiency [None]
  - Rash [None]
  - Abnormal faeces [None]
  - Chest pain [None]
  - Periodontitis [None]
  - Asthma [None]
  - Hyponatraemia [None]
  - Gingival pain [None]
  - Facial pain [None]
  - Burning sensation [None]
  - Paraesthesia [None]
  - Tendon pain [None]
  - Rash erythematous [None]
  - Diarrhoea [None]
  - Blood triglycerides increased [None]
  - Gingival hypertrophy [None]
  - Incorrect dose administered [None]
  - Tongue discolouration [None]
  - Muscle spasms [None]
  - Myopathy [None]

NARRATIVE: CASE EVENT DATE: 20160320
